FAERS Safety Report 4368285-8 (Version None)
Quarter: 2004Q2

REPORT INFORMATION
  Report Type: 
  Country: None (occurrence: None)
  Receive Date: 20040525
  Receipt Date: 20040512
  Transmission Date: 20050107
  Serious: Yes (Hospitalization)
  Sender: FDA-Public Use
  Company Number: 2004-00269FE

PATIENT
  Sex: Male

DRUGS (2)
  1. PENTASA [Suspect]
     Indication: COLITIS ULCERATIVE
     Dosage: 3 G ORALLY
     Route: 048
  2. PREVISCAN (PREVISCAN)  (FLUINDIONE) [Suspect]
     Dosage: ORALLY
     Route: 048

REACTIONS (4)
  - COAGULATION TIME PROLONGED [None]
  - DRUG INTERACTION [None]
  - HAEMATOCHEZIA [None]
  - PROTHROMBIN TIME PROLONGED [None]
